FAERS Safety Report 21676981 (Version 1)
Quarter: 2022Q4

REPORT INFORMATION
  Report Type: Spontaneous
  Country: GB (occurrence: GB)
  Receive Date: 20221203
  Receipt Date: 20221203
  Transmission Date: 20230113
  Serious: Yes (Other)
  Sender: FDA-Public Use
  Company Number: GB-002147023-NVSC2022GB260148

PATIENT
  Sex: Female

DRUGS (1)
  1. IMATINIB [Suspect]
     Active Substance: IMATINIB
     Indication: Rosai-Dorfman syndrome
     Dosage: UNK
     Route: 065

REACTIONS (7)
  - Nervous system disorder [Unknown]
  - Bone lesion [Unknown]
  - Mass [Not Recovered/Not Resolved]
  - Disease recurrence [Unknown]
  - Visual impairment [Unknown]
  - K-ras gene mutation [Unknown]
  - Product use in unapproved indication [Unknown]
